FAERS Safety Report 4304517-X (Version None)
Quarter: 2004Q1

REPORT INFORMATION
  Report Type: 
  Country: None (occurrence: None)
  Receive Date: 20040225
  Receipt Date: 20040225
  Transmission Date: 20041129
  Serious: Yes (Other)
  Sender: FDA-Public Use
  Company Number: None

PATIENT
  Age: 52 Year
  Sex: Male
  Weight: 120.2032 kg

DRUGS (4)
  1. ZICAM MATRIXX [Suspect]
     Indication: NASOPHARYNGITIS
     Dosage: 1 SHOT ONE NASAL
     Route: 045
     Dates: start: 20030213, end: 20030213
  2. DAILY MENS VITAMIN [Concomitant]
  3. FLAX SEED [Concomitant]
  4. PRINIVIL [Concomitant]

REACTIONS (2)
  - AGEUSIA [None]
  - ANOSMIA [None]
